FAERS Safety Report 7059732-1 (Version None)
Quarter: 2010Q4

REPORT INFORMATION
  Report Type: 
  Country: None (occurrence: None)
  Receive Date: 20101025
  Receipt Date: 20101017
  Transmission Date: 20110411
  Serious: Yes (Life-Threatening, Hospitalization, Other)
  Sender: FDA-Public Use
  Company Number: LY-BAYER-201042042GPV

PATIENT
  Age: 76 Year
  Sex: Male
  Weight: 56 kg

DRUGS (5)
  1. NEXAVAR [Suspect]
     Indication: HEPATIC NEOPLASM MALIGNANT
     Dosage: TOTAL DAILY DOSE: 800 MG  UNIT DOSE: 200 MG
     Route: 048
     Dates: start: 20100327
  2. LASIX [Concomitant]
     Indication: ASCITES
     Route: 048
     Dates: start: 20080101
  3. ALDACTONE [Concomitant]
     Indication: ASCITES
     Route: 048
     Dates: start: 20080101
  4. LACTULOSE [Concomitant]
     Indication: CONSTIPATION
     Route: 048
     Dates: start: 20080101
  5. INDERAL [Concomitant]
     Indication: VARICES OESOPHAGEAL
     Route: 048
     Dates: start: 20080101

REACTIONS (4)
  - DIARRHOEA [None]
  - MELAENA [None]
  - OESOPHAGEAL VARICES HAEMORRHAGE [None]
  - UPPER GASTROINTESTINAL HAEMORRHAGE [None]
